FAERS Safety Report 18522391 (Version 3)
Quarter: 2022Q4

REPORT INFORMATION
  Report Type: Report from Study
  Country: US (occurrence: US)
  Receive Date: 20201119
  Receipt Date: 20221028
  Transmission Date: 20230112
  Serious: No
  Sender: FDA-Public Use
  Company Number: US-TAKEDA-2020TUS046937

PATIENT
  Sex: Male
  Weight: 95 kg

DRUGS (10)
  1. HUMAN IMMUNOGLOBULIN G [Suspect]
     Active Substance: HUMAN IMMUNOGLOBULIN G
     Indication: Immunodeficiency common variable
     Dosage: 20 GRAM, Q2WEEKS
     Route: 058
     Dates: start: 20171114
  2. ACETAMINOPHEN [Concomitant]
     Active Substance: ACETAMINOPHEN
  3. DIPHENHYDRAMINE [Concomitant]
     Active Substance: DIPHENHYDRAMINE
  4. EPINEPHRINE [Concomitant]
     Active Substance: EPINEPHRINE
  5. PREDNISONE [Concomitant]
     Active Substance: PREDNISONE
  6. SYMBICORT [Concomitant]
     Active Substance: BUDESONIDE\FORMOTEROL FUMARATE DIHYDRATE
  7. METFORMIN [Concomitant]
     Active Substance: METFORMIN HYDROCHLORIDE
  8. OMEPRAZOLE [Concomitant]
     Active Substance: OMEPRAZOLE
  9. ALLOPURINOL [Concomitant]
     Active Substance: ALLOPURINOL
  10. FISH OIL [Concomitant]
     Active Substance: FISH OIL

REACTIONS (2)
  - Tooth infection [Unknown]
  - Nasopharyngitis [Unknown]
